FAERS Safety Report 21422658 (Version 1)
Quarter: 2022Q4

REPORT INFORMATION
  Report Type: Spontaneous
  Country: CN (occurrence: CN)
  Receive Date: 20221007
  Receipt Date: 20221007
  Transmission Date: 20230113
  Serious: Yes (Hospitalization, Other)
  Sender: FDA-Public Use
  Company Number: CN-009507513-2209CHN011295

PATIENT
  Age: 67 Year
  Sex: Male
  Weight: 50 kg

DRUGS (1)
  1. CILASTATIN SODIUM\IMIPENEM [Suspect]
     Active Substance: CILASTATIN SODIUM\IMIPENEM
     Indication: Pneumonia
     Dosage: 0.5 G, THREE TIMES A DAY
     Route: 041
     Dates: start: 20190121, end: 20190129

REACTIONS (8)
  - Muscle twitching [Recovering/Resolving]
  - Gaze palsy [Unknown]
  - Loss of consciousness [Unknown]
  - Confusional state [Unknown]
  - Trismus [Unknown]
  - Nuchal rigidity [Unknown]
  - Muscle twitching [Recovered/Resolved]
  - Trismus [Unknown]

NARRATIVE: CASE EVENT DATE: 20190128
